FAERS Safety Report 13636629 (Version 1)
Quarter: 2017Q2

REPORT INFORMATION
  Report Type: Spontaneous
  Country: US (occurrence: US)
  Receive Date: 20170609
  Receipt Date: 20170609
  Transmission Date: 20170830
  Serious: No
  Sender: FDA-Public Use
  Company Number: US-WEST-WARD PHARMACEUTICALS CORP.-US-H14001-17-00539

PATIENT
  Sex: Female
  Weight: 75.28 kg

DRUGS (1)
  1. FLUTICASONE PROPIONATE. [Suspect]
     Active Substance: FLUTICASONE PROPIONATE
     Indication: NASAL CONGESTION
     Route: 045
     Dates: start: 201701, end: 20170214

REACTIONS (2)
  - Drug ineffective [Recovered/Resolved]
  - Drug effect variable [Recovered/Resolved]

NARRATIVE: CASE EVENT DATE: 201701
